FAERS Safety Report 18918441 (Version 2)
Quarter: 2021Q1

REPORT INFORMATION
  Report Type: Spontaneous
  Country: US (occurrence: US)
  Receive Date: 20210219
  Receipt Date: 20210223
  Transmission Date: 20210420
  Serious: No
  Sender: FDA-Public Use
  Company Number: US-PFIZER INC-2021166726

PATIENT
  Age: 66 Year
  Sex: Female

DRUGS (1)
  1. METHOTREXATE SODIUM. [Suspect]
     Active Substance: METHOTREXATE SODIUM
     Dosage: UNK

REACTIONS (5)
  - Rectal tenesmus [Unknown]
  - Irritable bowel syndrome [Unknown]
  - Dizziness [Recovered/Resolved]
  - Rhinorrhoea [Unknown]
  - Gastrointestinal disorder [Unknown]
